FAERS Safety Report 9463273 (Version 2)
Quarter: 2013Q3

REPORT INFORMATION
  Report Type: Spontaneous
  Country: US (occurrence: US)
  Receive Date: 20130819
  Receipt Date: 20130930
  Transmission Date: 20140515
  Serious: Yes (Hospitalization, Other)
  Sender: FDA-Public Use
  Company Number: US-AMGEN-USASP2013056651

PATIENT
  Age: 37 Year
  Sex: Female

DRUGS (6)
  1. ENBREL [Suspect]
     Indication: RHEUMATOID ARTHRITIS
     Dosage: 25 MG, EVERY 3 DAYS
     Route: 058
     Dates: start: 20030101
  2. PLAQUENIL                          /00072603/ [Concomitant]
     Dosage: 200 MG, TWICE A DAY
     Route: 048
     Dates: start: 2003
  3. OXYCONTIN [Concomitant]
     Dosage: UNK
  4. SKELAXIN                           /00611501/ [Concomitant]
     Dosage: UNK
  5. TYLENOL                            /00020001/ [Concomitant]
     Dosage: UNK
  6. ZANAFLEX [Concomitant]
     Dosage: UNK

REACTIONS (21)
  - Knee arthroplasty [Unknown]
  - Suicidal ideation [Recovered/Resolved]
  - Myringotomy [Recovered/Resolved]
  - Pain [Recovered/Resolved]
  - Joint warmth [Not Recovered/Not Resolved]
  - Generalised erythema [Not Recovered/Not Resolved]
  - Bone pain [Not Recovered/Not Resolved]
  - Joint swelling [Not Recovered/Not Resolved]
  - Migraine [Not Recovered/Not Resolved]
  - Temporomandibular joint syndrome [Not Recovered/Not Resolved]
  - Hypoaesthesia [Not Recovered/Not Resolved]
  - Weight decreased [Not Recovered/Not Resolved]
  - Weight increased [Not Recovered/Not Resolved]
  - Alopecia [Not Recovered/Not Resolved]
  - Rash [Recovered/Resolved]
  - Vitamin D deficiency [Recovered/Resolved]
  - Hypothyroidism [Not Recovered/Not Resolved]
  - Thyroiditis [Not Recovered/Not Resolved]
  - Ear tube insertion [Recovered/Resolved]
  - Memory impairment [Recovered/Resolved]
  - Joint effusion [Unknown]
